FAERS Safety Report 12632555 (Version 2)
Quarter: 2016Q3

REPORT INFORMATION
  Report Type: Spontaneous
  Country: US (occurrence: US)
  Receive Date: 20160808
  Receipt Date: 20160808
  Transmission Date: 20161109
  Serious: No
  Sender: FDA-Public Use
  Company Number: US-BEH-2015055992

PATIENT
  Sex: Female
  Weight: 82 kg

DRUGS (30)
  1. DIPHENHYDRAMINE. [Concomitant]
     Active Substance: DIPHENHYDRAMINE
  2. BREO ELLIPTA [Concomitant]
     Active Substance: FLUTICASONE FUROATE\VILANTEROL TRIFENATATE
  3. ZYRTEC [Concomitant]
     Active Substance: CETIRIZINE HYDROCHLORIDE
  4. SINGULAIR [Concomitant]
     Active Substance: MONTELUKAST SODIUM
  5. HIZENTRA [Suspect]
     Active Substance: HUMAN IMMUNOGLOBULIN G
     Indication: HYPOGAMMAGLOBULINAEMIA
     Route: 058
  6. DAILY MULTIVIT-MINERALS [Concomitant]
  7. ACETAMINOPHEN. [Concomitant]
     Active Substance: ACETAMINOPHEN
  8. CRANBERRY. [Concomitant]
     Active Substance: CRANBERRY
  9. IMIPRAMINE [Concomitant]
     Active Substance: IMIPRAMINE
  10. REVATIO [Concomitant]
     Active Substance: SILDENAFIL CITRATE
  11. OXYGEN. [Concomitant]
     Active Substance: OXYGEN
  12. XOPENEX [Concomitant]
     Active Substance: LEVALBUTEROL HYDROCHLORIDE
  13. LANSOPRAZOLE. [Concomitant]
     Active Substance: LANSOPRAZOLE
  14. MICARDIS HCT [Concomitant]
     Active Substance: HYDROCHLOROTHIAZIDE\TELMISARTAN
  15. PROBIOTIC [Concomitant]
     Active Substance: PROBIOTICS NOS
  16. LIDOCAINE/PRILOCAINE [Concomitant]
     Active Substance: LIDOCAINE\PRILOCAINE
  17. PATADAY [Concomitant]
     Active Substance: OLOPATADINE HYDROCHLORIDE
  18. LEVOTHYROXINE. [Concomitant]
     Active Substance: LEVOTHYROXINE
  19. METOPROLOL SUCC ER [Concomitant]
     Active Substance: METOPROLOL SUCCINATE
  20. MUCINEX ER [Concomitant]
  21. HIZENTRA [Suspect]
     Active Substance: HUMAN IMMUNOGLOBULIN G
     Indication: HYPOGAMMAGLOBULINAEMIA
     Route: 058
  22. SILDENAFIL CITRATE. [Concomitant]
     Active Substance: SILDENAFIL CITRATE
  23. CEPHALEXIN. [Concomitant]
     Active Substance: CEPHALEXIN
  24. SIMVASTATIN. [Concomitant]
     Active Substance: SIMVASTATIN
  25. ALLOPURINOL. [Concomitant]
     Active Substance: ALLOPURINOL
  26. SPIRIVA [Concomitant]
     Active Substance: TIOTROPIUM BROMIDE MONOHYDRATE
  27. CALCIUM+VITAMIN D [Concomitant]
     Active Substance: CALCIUM\VITAMIN D
  28. EPIPEN [Concomitant]
     Active Substance: EPINEPHRINE
  29. GABAPENTIN. [Concomitant]
     Active Substance: GABAPENTIN
  30. IPRATROPIUM BR [Concomitant]

REACTIONS (1)
  - Ear infection [Unknown]
